FAERS Safety Report 15767144 (Version 1)
Quarter: 2018Q4

REPORT INFORMATION
  Report Type: Spontaneous
  Country: US (occurrence: US)
  Receive Date: 20181227
  Receipt Date: 20181227
  Transmission Date: 20190205
  Serious: Yes (Other)
  Sender: FDA-Public Use
  Company Number: US-ASTRAZENECA-2018SF47773

PATIENT
  Age: 28024 Day
  Sex: Female
  Weight: 93 kg

DRUGS (14)
  1. MECLIZINE HCL [Concomitant]
     Active Substance: MECLIZINE HYDROCHLORIDE
     Route: 048
     Dates: start: 20160916
  2. PRILOSEC OTC [Suspect]
     Active Substance: OMEPRAZOLE MAGNESIUM
     Route: 048
     Dates: start: 20040213
  3. OMEPRAZOLE. [Suspect]
     Active Substance: OMEPRAZOLE
     Route: 048
     Dates: start: 20150327
  4. CLONIDINE. [Concomitant]
     Active Substance: CLONIDINE
     Indication: HYPERSENSITIVITY
     Route: 048
     Dates: start: 20170423
  5. OMEPRAZOLE. [Suspect]
     Active Substance: OMEPRAZOLE
     Route: 065
     Dates: start: 20120123
  6. ASPIRIN. [Concomitant]
     Active Substance: ASPIRIN
     Route: 048
  7. NITROGLYCERIN. [Concomitant]
     Active Substance: NITROGLYCERIN
     Indication: CHEST PAIN
     Route: 048
     Dates: start: 20170423
  8. RENVELA [Concomitant]
     Active Substance: SEVELAMER CARBONATE
     Dosage: 2 TABLETS BY MOUTH WITH MEAL
     Route: 048
     Dates: start: 20150420
  9. SENSIPAR [Concomitant]
     Active Substance: CINACALCET HYDROCHLORIDE
     Route: 048
     Dates: start: 20160919
  10. ASPIRIN. [Concomitant]
     Active Substance: ASPIRIN
     Route: 048
     Dates: start: 20160125
  11. TAMSULOSIN [Concomitant]
     Active Substance: TAMSULOSIN
     Route: 048
  12. GABAPENTIN. [Concomitant]
     Active Substance: GABAPENTIN
     Route: 048
     Dates: start: 20140618
  13. ACETAMINOPHEN. [Concomitant]
     Active Substance: ACETAMINOPHEN
     Indication: PAIN
     Dosage: 1-2 TABS PO
     Route: 048
     Dates: start: 20150420
  14. DIPHENHYDRAMINE. [Concomitant]
     Active Substance: DIPHENHYDRAMINE
     Route: 048
     Dates: start: 20170423

REACTIONS (5)
  - Nephrogenic anaemia [Unknown]
  - Chronic kidney disease [Unknown]
  - Hyperparathyroidism secondary [Unknown]
  - End stage renal disease [Unknown]
  - Renal failure [Unknown]

NARRATIVE: CASE EVENT DATE: 20150420
